FAERS Safety Report 9116114 (Version 3)
Quarter: 2013Q2

REPORT INFORMATION
  Report Type: Spontaneous
  Country: US (occurrence: US)
  Receive Date: 20130225
  Receipt Date: 20130508
  Transmission Date: 20140414
  Serious: Yes (Other)
  Sender: FDA-Public Use
  Company Number: US-PFIZER INC-2013064428

PATIENT
  Age: 19 Year
  Sex: Male
  Weight: 61.22 kg

DRUGS (2)
  1. ZITHROMAX [Suspect]
     Indication: LYME DISEASE
     Dosage: 250 MG, 2X/DAY
  2. TRILEPTAL [Suspect]
     Indication: CONVULSION
     Dosage: 600 MG, 2X/DAY

REACTIONS (1)
  - Grand mal convulsion [Unknown]
